FAERS Safety Report 7683040-9 (Version None)
Quarter: 2011Q3

REPORT INFORMATION
  Report Type: 
  Country: None (occurrence: None)
  Receive Date: 20110812
  Receipt Date: 20110812
  Transmission Date: 20111222
  Serious: Yes (Hospitalization)
  Sender: FDA-Public Use
  Company Number: None

PATIENT
  Age: 57 Year
  Sex: Female
  Weight: 90.7194 kg

DRUGS (3)
  1. FEMARA [Concomitant]
  2. AVASTIN [Suspect]
     Dosage: 1400 MG GIVEN IV
     Route: 042
     Dates: start: 20110721
  3. ATENOLOL [Concomitant]

REACTIONS (1)
  - HAEMATEMESIS [None]
